FAERS Safety Report 10728884 (Version 1)
Quarter: 2015Q1

REPORT INFORMATION
  Report Type: Spontaneous
  Country: MX (occurrence: None)
  Receive Date: 20150120
  Receipt Date: 20150120
  Transmission Date: 20150721
  Serious: Yes (Life-Threatening, Disabling, Other)
  Sender: FDA-Public Use
  Company Number: None

PATIENT
  Age: 19 Year
  Sex: Male
  Weight: 61.24 kg

DRUGS (1)
  1. CLARAVIS [Suspect]
     Active Substance: ISOTRETINOIN
     Indication: ACNE
     Route: 048

REACTIONS (6)
  - Proctitis ulcerative [None]
  - Ageusia [None]
  - Emotional distress [None]
  - Schizophrenia [None]
  - Hallucination [None]
  - Depersonalisation [None]

NARRATIVE: CASE EVENT DATE: 20141216
